FAERS Safety Report 10144253 (Version 2)
Quarter: 2014Q2

REPORT INFORMATION
  Report Type: Spontaneous
  Country: DE (occurrence: VN)
  Receive Date: 20140430
  Receipt Date: 20140506
  Transmission Date: 20141212
  Serious: Yes (Hospitalization)
  Sender: FDA-Public Use
  Company Number: DE-ACTELION-A-US2014-98310

PATIENT
  Age: 43 Year
  Sex: Female

DRUGS (2)
  1. VENTAVIS BAYER SCHERING [Suspect]
     Indication: PRODUCT USED FOR UNKNOWN INDICATION
     Dosage: 5 MCG, UNK
     Route: 055
     Dates: start: 20140421
  2. VENTAVIS BAYER SCHERING [Suspect]
     Dosage: 2.5 MCG, UNK
     Route: 055
     Dates: end: 2014

REACTIONS (3)
  - Erythema [Recovered/Resolved]
  - Rhinalgia [Recovered/Resolved]
  - Nausea [Recovered/Resolved]
